FAERS Safety Report 20449741 (Version 3)
Quarter: 2022Q1

REPORT INFORMATION
  Report Type: Spontaneous
  Country: FR (occurrence: FR)
  Receive Date: 20220209
  Receipt Date: 20220330
  Transmission Date: 20220424
  Serious: Yes (Hospitalization, Other)
  Sender: FDA-Public Use
  Company Number: FR-REDHILL BIOPHARMA-2022RDH00019

PATIENT
  Age: 63 Year
  Sex: Male
  Weight: 110 kg

DRUGS (24)
  1. NALOXEGOL OXALATE [Suspect]
     Active Substance: NALOXEGOL OXALATE
     Indication: Constipation
     Dosage: 25 MG, 1X/DAY
     Route: 048
     Dates: start: 20211117, end: 20211207
  2. LOVENOX [Suspect]
     Active Substance: ENOXAPARIN SODIUM
     Indication: Thrombosis prophylaxis
     Dosage: 4000 IU, 1X/DAY
     Route: 058
     Dates: start: 20211012, end: 20211219
  3. MOVICOL [Suspect]
     Active Substance: POLYETHYLENE GLYCOL 3350\POTASSIUM CHLORIDE\SODIUM BICARBONATE\SODIUM CHLORIDE
     Indication: Constipation
     Dosage: 2 DOSAGE FORM, 1X/DAY
     Route: 048
     Dates: start: 20211111, end: 20211207
  4. ZOPICLONE [Suspect]
     Active Substance: ZOPICLONE
     Indication: Insomnia
     Dosage: 3.75 MG, 1X/DAY
     Route: 048
     Dates: start: 20211013, end: 20211019
  5. AMOXICILLIN [Suspect]
     Active Substance: AMOXICILLIN
     Indication: Osteomyelitis
     Dosage: 8 G, 1X/DAY
     Route: 048
     Dates: start: 20211018, end: 20211110
  6. AMOXICILLIN [Suspect]
     Active Substance: AMOXICILLIN
     Dosage: UNK
     Route: 048
     Dates: start: 20211216
  7. CEFEPIME [Suspect]
     Active Substance: CEFEPIME HYDROCHLORIDE
     Indication: Osteomyelitis
     Dosage: 4 G, 1X/DAY
     Route: 042
     Dates: start: 20211207, end: 20211216
  8. OXYCODONE [Suspect]
     Active Substance: OXYCODONE
     Indication: Pain
     Dosage: 40 MG, 1X/DAY
     Route: 048
     Dates: start: 20211019, end: 20211224
  9. CLINDAMYCIN [Suspect]
     Active Substance: CLINDAMYCIN
     Indication: Osteomyelitis
     Dosage: 2400 MG, 1X/DAY
     Route: 048
     Dates: start: 20211018, end: 20211110
  10. CLINDAMYCIN [Suspect]
     Active Substance: CLINDAMYCIN
     Dosage: UNK
     Route: 048
     Dates: start: 20211216
  11. LINEZOLID [Suspect]
     Active Substance: LINEZOLID
     Indication: Antibiotic therapy
     Dosage: UNK
     Dates: start: 20211210, end: 202112
  12. PANTOPRAZOLE [Concomitant]
     Active Substance: PANTOPRAZOLE
  13. RISPERIDONE [Concomitant]
     Active Substance: RISPERIDONE
  14. LEVEMIR [Concomitant]
     Active Substance: INSULIN DETEMIR
  15. APIDRA [Concomitant]
     Active Substance: INSULIN GLULISINE
  16. TELMISARTAN [Concomitant]
     Active Substance: TELMISARTAN
  17. AMLODIPINE [Concomitant]
     Active Substance: AMLODIPINE BESYLATE
  18. FUROSEMIDE [Concomitant]
     Active Substance: FUROSEMIDE
  19. METFORMIN HYDROCHLORIDE [Concomitant]
     Active Substance: METFORMIN HYDROCHLORIDE
  20. TAMSULOSIN HYDROCHLORIDE [Concomitant]
     Active Substance: TAMSULOSIN HYDROCHLORIDE
  21. FONDAPARINUX [Concomitant]
     Active Substance: FONDAPARINUX
  22. LEVOFLOXACIN [Concomitant]
     Active Substance: LEVOFLOXACIN
     Dosage: UNK
     Dates: start: 20211223
  23. RIFAMPIN [Concomitant]
     Active Substance: RIFAMPIN
     Dosage: UNK
     Dates: start: 20211223
  24. SKENAN [Concomitant]
     Active Substance: MORPHINE SULFATE
     Dosage: UNK
     Dates: start: 20211224

REACTIONS (1)
  - Drug reaction with eosinophilia and systemic symptoms [Recovering/Resolving]

NARRATIVE: CASE EVENT DATE: 20211123
